FAERS Safety Report 4706360-6 (Version None)
Quarter: 2005Q2

REPORT INFORMATION
  Report Type: 
  Country: None (occurrence: None)
  Receive Date: 20050613
  Receipt Date: 20050613
  Transmission Date: 20051028
  Serious: No
  Sender: FDA-Public Use
  Company Number: None

PATIENT
  Sex: Female
  Weight: 95.2554 kg

DRUGS (1)
  1. METFORMIN (GENERIC) [Suspect]
     Indication: POLYCYSTIC OVARIES
     Dosage: 500 MG QD INCREASING DOSE TO 2 GM QD

REACTIONS (2)
  - NAUSEA [None]
  - VOMITING [None]
